FAERS Safety Report 5402362-5 (Version None)
Quarter: 2007Q3

REPORT INFORMATION
  Report Type: 
  Country: None (occurrence: None)
  Receive Date: 20070730
  Receipt Date: 20070730
  Transmission Date: 20080115
  Serious: Yes (Other)
  Sender: FDA-Public Use
  Company Number: None

PATIENT
  Age: 52 Year
  Sex: Female
  Weight: 68.0396 kg

DRUGS (1)
  1. LOTEMAX [Suspect]
     Indication: EYE INFLAMMATION

REACTIONS (7)
  - ALLERGIC SINUSITIS [None]
  - EAR DISORDER [None]
  - EYE ALLERGY [None]
  - EYE INFECTION [None]
  - HYPERSENSITIVITY [None]
  - INFLAMMATION [None]
  - REACTION TO PRESERVATIVES [None]
